FAERS Safety Report 9049271 (Version 1)
Quarter: 2012Q4

REPORT INFORMATION
  Report Type: Spontaneous
  Country: GB (occurrence: None)
  Receive Date: 20120905
  Receipt Date: 20120905
  Transmission Date: 20130627
  Serious: Yes (Hospitalization)
  Sender: FDA-Public Use
  Company Number: 218673

PATIENT

DRUGS (1)
  1. DAIVOBET [Suspect]
     Indication: DRUG USE FOR UNKNOWN INDICATION

REACTIONS (3)
  - Pituitary-dependent Cushing^s syndrome [None]
  - Malaise [None]
  - Unevaluable event [None]
